FAERS Safety Report 7933542-2 (Version None)
Quarter: 2011Q4

REPORT INFORMATION
  Report Type: 
  Country: None (occurrence: None)
  Receive Date: 20111122
  Receipt Date: 20111116
  Transmission Date: 20120403
  Serious: Yes (Other)
  Sender: FDA-Public Use
  Company Number: JP-SANOFI-AVENTIS-2011SA075948

PATIENT

DRUGS (7)
  1. GEMCITABINE HYDROCHLORIDE [Suspect]
     Route: 065
  2. PEMETREXED [Suspect]
     Route: 065
  3. AMRUBICIN [Suspect]
     Route: 065
  4. DOCETAXEL [Suspect]
     Route: 065
  5. GEFITINIB [Suspect]
     Route: 065
  6. VINORELBINE TARTRATE [Suspect]
     Route: 065
  7. ERLOTINIB HYDROCHLORIDE [Suspect]
     Route: 065

REACTIONS (1)
  - LUNG DISORDER [None]
